FAERS Safety Report 6307133-3 (Version None)
Quarter: 2009Q3

REPORT INFORMATION
  Report Type: 
  Country: None (occurrence: None)
  Receive Date: 20090813
  Receipt Date: 20090811
  Transmission Date: 20100115
  Serious: Yes (Hospitalization)
  Sender: FDA-Public Use
  Company Number: US-RB-019262-09

PATIENT
  Sex: Male

DRUGS (1)
  1. SUBOXONE [Suspect]
     Indication: DRUG USE FOR UNKNOWN INDICATION
     Dosage: DOSING INFORMATION UNKNOWN.
     Route: 065

REACTIONS (5)
  - FEELING ABNORMAL [None]
  - HAEMORRHAGE [None]
  - MEMORY IMPAIRMENT [None]
  - PAIN [None]
  - SOMNOLENCE [None]
